FAERS Safety Report 21999276 (Version 1)
Quarter: 2023Q1

REPORT INFORMATION
  Report Type: Spontaneous
  Country: GB (occurrence: GB)
  Receive Date: 20230216
  Receipt Date: 20230216
  Transmission Date: 20230418
  Serious: Yes (Other)
  Sender: FDA-Public Use
  Company Number: GB-MYLANLABS-2023M1016664

PATIENT
  Age: 28 Year
  Sex: Male

DRUGS (3)
  1. TRAMADOL [Suspect]
     Active Substance: TRAMADOL
     Indication: Analgesic therapy
     Dosage: UNK (TRAMADOL IMMEDIATE RELEASE 100 MG IN THE MORNING AND EVENING, PLUS 50-100 MG.....
     Route: 048
  2. TRAMADOL [Suspect]
     Active Substance: TRAMADOL
     Dosage: DECREASE THE DOSE OF TRAMADOL TO 100MG IN THE MORNING AND 50-100MG FOR DRESSING CHANGE
     Route: 048
  3. DICLOFENAC [Suspect]
     Active Substance: DICLOFENAC
     Indication: Analgesic therapy
     Dosage: 75 MILLIGRAM, BID (DICLOFENAC MODIFIED RELEASE)
     Route: 048

REACTIONS (1)
  - Drug ineffective [Unknown]
